FAERS Safety Report 5655712-9 (Version None)
Quarter: 2008Q1

REPORT INFORMATION
  Report Type: 
  Country: None (occurrence: None)
  Receive Date: 20080307
  Receipt Date: 20080228
  Transmission Date: 20080703
  Serious: Yes (Hospitalization)
  Sender: FDA-Public Use
  Company Number: US-PFIZER INC-2006144065

PATIENT
  Sex: Female

DRUGS (31)
  1. IRINOTECAN HCL [Suspect]
     Indication: COLORECTAL CANCER
     Route: 042
  2. PANITUMUMAB [Suspect]
     Indication: COLORECTAL CANCER
     Route: 042
  3. LATANOPROST [Suspect]
     Dosage: TEXT:1 GTT
     Route: 047
  4. FLUOROURACIL [Suspect]
  5. BEVACIZUMAB [Concomitant]
     Route: 042
  6. FOLINIC ACID [Concomitant]
     Route: 042
  7. METFORMIN HCL [Concomitant]
     Route: 048
  8. NATEGLINIDE [Concomitant]
     Route: 048
  9. GLIBENCLAMIDE [Concomitant]
     Route: 048
  10. PREGABALIN [Concomitant]
     Route: 048
  11. HYDROCODONE BITARTRATE [Concomitant]
     Route: 048
  12. APAP TAB [Concomitant]
     Route: 048
  13. FERROUS SULFATE TAB [Concomitant]
     Route: 048
  14. ASCORBIC ACID [Concomitant]
     Route: 048
  15. FOLIC ACID [Concomitant]
     Route: 048
  16. GLUCOSAMINE [Concomitant]
     Route: 048
  17. CHONDROITIN [Concomitant]
     Route: 048
  18. DORZOLAMIDE HCL AND TIMOLOL MALEATE [Concomitant]
     Route: 047
  19. POLYMYXIN B SULFATE [Concomitant]
  20. ARANESP [Concomitant]
  21. PALONOSETRON [Concomitant]
     Route: 042
  22. DEXAMETHASONE TAB [Concomitant]
     Route: 042
  23. DIPHENHYDRAMINE HYDROCHLORIDE [Concomitant]
     Route: 042
  24. PROCHLORPERAZINE EDISYLATE [Concomitant]
  25. LOPERAMIDE HCL [Concomitant]
  26. LANSOPRAZOLE [Concomitant]
     Route: 048
  27. NEULASTA [Concomitant]
     Route: 058
  28. HEPARIN [Concomitant]
     Route: 042
  29. ACETAMINOPHEN [Concomitant]
     Route: 048
  30. ZINC [Concomitant]
  31. FENTANYL [Concomitant]
     Route: 042

REACTIONS (2)
  - HYPERGLYCAEMIA [None]
  - VOMITING [None]
